FAERS Safety Report 4845108-1 (Version None)
Quarter: 2005Q4

REPORT INFORMATION
  Report Type: 
  Country: None (occurrence: None)
  Receive Date: 20051115
  Receipt Date: 20050916
  Transmission Date: 20060501
  Serious: Yes (Disabling)
  Sender: FDA-Public Use
  Company Number: 418131

PATIENT
  Age: 51 Year
  Sex: Female
  Weight: 44.9 kg

DRUGS (3)
  1. PEGASYS [Suspect]
     Indication: HEPATITIS C
     Dosage: 1 DOSE FORM 1 PER WEEK SUBCUTANEOUS
     Route: 058
     Dates: start: 20050801, end: 20050916
  2. SOMA [Concomitant]
  3. COPEGUS [Suspect]
     Indication: HEPATITIS C
     Dosage: 400 MG 2 PER DAY ORAL
     Route: 048
     Dates: start: 20050801, end: 20050916

REACTIONS (1)
  - DEAFNESS UNILATERAL [None]
